FAERS Safety Report 23490753 (Version 1)
Quarter: 2024Q1

REPORT INFORMATION
  Report Type: Spontaneous
  Country: US (occurrence: None)
  Receive Date: 20240206
  Receipt Date: 20240206
  Transmission Date: 20240410
  Serious: No
  Sender: FDA-Public Use
  Company Number: US-ROCHE-3460570

PATIENT
  Age: 15 Year
  Sex: Female

DRUGS (2)
  1. NUTROPIN AQ [Suspect]
     Active Substance: SOMATROPIN
     Indication: Karyotype analysis abnormal
     Dosage: NUSPIN 20MG/2ML, INJECT 3.4MG ALTERNATING WITH 3.6MG
     Route: 058
  2. NUTROPIN AQ [Suspect]
     Active Substance: SOMATROPIN

REACTIONS (2)
  - Off label use [Unknown]
  - No adverse event [Unknown]
